FAERS Safety Report 9395024 (Version 1)
Quarter: 2013Q3

REPORT INFORMATION
  Report Type: Spontaneous
  Country: US (occurrence: US)
  Receive Date: 20130711
  Receipt Date: 20130711
  Transmission Date: 20140515
  Serious: Yes (Other)
  Sender: FDA-Public Use
  Company Number: US-JNJFOC-20130702704

PATIENT
  Sex: 0

DRUGS (3)
  1. KETOCONAZOLE [Suspect]
     Indication: ENZYME INHIBITION
     Route: 048
  2. PAZOPANIB [Interacting]
     Indication: NEOPLASM
     Route: 048
  3. PAZOPANIB [Interacting]
     Indication: NEOPLASM
     Route: 048

REACTIONS (3)
  - Lymphopenia [Unknown]
  - Drug interaction [Unknown]
  - Contraindication to medical treatment [Unknown]
